FAERS Safety Report 5209136-9 (Version None)
Quarter: 2007Q1

REPORT INFORMATION
  Report Type: 
  Country: None (occurrence: None)
  Receive Date: 20070116
  Receipt Date: 20061108
  Transmission Date: 20070707
  Serious: Yes (Other)
  Sender: FDA-Public Use
  Company Number: JP-MERCK-0611USA03729

PATIENT
  Age: 57 Year
  Sex: Male

DRUGS (2)
  1. INDOCIN [Suspect]
     Route: 054
  2. [THERAPY UNSPECIFIED] [Concomitant]
     Indication: CHEMOTHERAPY
     Route: 065

REACTIONS (2)
  - PERITONITIS [None]
  - SMALL INTESTINAL PERFORATION [None]
